FAERS Safety Report 8009923-8 (Version None)
Quarter: 2011Q4

REPORT INFORMATION
  Report Type: 
  Country: None (occurrence: None)
  Receive Date: 20111228
  Receipt Date: 20111214
  Transmission Date: 20120403
  Serious: Yes (Hospitalization)
  Sender: FDA-Public Use
  Company Number: PHHY2011JP109438

PATIENT
  Sex: Female

DRUGS (5)
  1. FUROSEMIDE [Concomitant]
  2. ALISKIREN [Suspect]
     Indication: HYPERTENSION
     Route: 048
  3. AMLODIPINE [Concomitant]
  4. BETAXOLOL HCL [Concomitant]
  5. OLMESARTAN MEDOXOMIL [Concomitant]

REACTIONS (2)
  - RENAL IMPAIRMENT [None]
  - DRUG ERUPTION [None]
